FAERS Safety Report 5093381-X (Version None)
Quarter: 2006Q3

REPORT INFORMATION
  Report Type: 
  Country: None (occurrence: None)
  Receive Date: 20060828
  Receipt Date: 20060816
  Transmission Date: 20061208
  Serious: Yes (Life-Threatening)
  Sender: FDA-Public Use
  Company Number: 2006100191

PATIENT
  Age: 82 Year
  Sex: Female
  Weight: 74 kg

DRUGS (2)
  1. ALDACTONE [Suspect]
     Indication: SECONDARY HYPERTENSION
     Dosage: 50 MG (50 MG,DAILY),ORAL
     Route: 048
     Dates: start: 20051130, end: 20060623
  2. FELDENE [Concomitant]

REACTIONS (5)
  - ATRIOVENTRICULAR BLOCK [None]
  - CARDIAC ARREST [None]
  - CONDUCTION DISORDER [None]
  - HYPERKALAEMIA [None]
  - SYNCOPE [None]
